FAERS Safety Report 5324163-9 (Version None)
Quarter: 2007Q2

REPORT INFORMATION
  Report Type: 
  Country: None (occurrence: None)
  Receive Date: 20070514
  Receipt Date: 20070509
  Transmission Date: 20071010
  Serious: Yes (Hospitalization)
  Sender: FDA-Public Use
  Company Number: US-BAYER-200711467BWH

PATIENT
  Age: 60 Year
  Sex: Male
  Weight: 106 kg

DRUGS (11)
  1. SORAFENIB [Suspect]
     Indication: NON-SMALL CELL LUNG CANCER
     Dosage: TOTAL DAILY DOSE: 400 MG  UNIT DOSE: 200 MG
     Route: 048
     Dates: start: 20070414, end: 20070430
  2. BEVACIZUMAB [Suspect]
     Indication: NON-SMALL CELL LUNG CANCER
     Route: 042
     Dates: start: 20070413, end: 20070413
  3. TAXOL [Suspect]
     Indication: NON-SMALL CELL LUNG CANCER
     Route: 042
     Dates: start: 20070413, end: 20070413
  4. CARBOPLATIN [Suspect]
     Indication: NON-SMALL CELL LUNG CANCER
     Route: 042
     Dates: start: 20070413, end: 20070413
  5. VICODIN [Concomitant]
     Indication: ARTHRALGIA
     Route: 048
     Dates: start: 20070306
  6. VITAMIN B6 [Concomitant]
     Indication: VITAMIN SUPPLEMENTATION
     Route: 048
     Dates: start: 20070302
  7. TYLENOL EXTRA STRENGTH [Concomitant]
     Indication: ARTHRALGIA
     Dates: start: 20070306
  8. UDDER BALM [Concomitant]
     Indication: PROPHYLAXIS
     Route: 061
     Dates: start: 20070302
  9. XYLOCAINE VISCOUS [Concomitant]
     Indication: MUCOSAL INFLAMMATION
     Route: 048
     Dates: start: 20070405
  10. GLYOSIDE [Concomitant]
     Indication: MUCOSAL INFLAMMATION
     Route: 048
     Dates: start: 20070405
  11. IMODIUM [Concomitant]
     Indication: DIARRHOEA
     Route: 048
     Dates: start: 20070324

REACTIONS (1)
  - PULMONARY EMBOLISM [None]
